FAERS Safety Report 6044672-7 (Version None)
Quarter: 2009Q1

REPORT INFORMATION
  Report Type: 
  Country: None (occurrence: None)
  Receive Date: 20090120
  Receipt Date: 20090109
  Transmission Date: 20090719
  Serious: Yes (Other)
  Sender: FDA-Public Use
  Company Number: US-JNJCH-2009000810

PATIENT
  Age: 63 Year
  Sex: Male
  Weight: 91.6 kg

DRUGS (1)
  1. ROGAINE [Suspect]
     Indication: ALOPECIA
     Dosage: TEXT:1 ML TWICE A DAY
     Route: 061

REACTIONS (4)
  - ALOPECIA [None]
  - APPLICATION SITE BLEEDING [None]
  - HYPERSENSITIVITY [None]
  - STAPHYLOCOCCAL INFECTION [None]
